FAERS Safety Report 9251741 (Version 1)
Quarter: 2013Q1

REPORT INFORMATION
  Report Type: Spontaneous
  Country: US (occurrence: None)
  Receive Date: 20130305
  Receipt Date: 20130305
  Transmission Date: 20140127
  Serious: Yes (Disabling, Other)
  Sender: FDA-Public Use
  Company Number: 163-21880-12092658

PATIENT
  Age: 79 Year
  Sex: Male
  Weight: 87.54 kg

DRUGS (6)
  1. REVLIMID (LENALIDOMIDE) (25 MILLIGRAM, CAPSULES) [Suspect]
     Indication: PLASMA CELL MYELOMA
     Dosage: 08/2011 - UNKNOWN, 25 MG, 21 IN 28 D, PO
  2. BABY ASPIRIN (ACETYLSALICYLIC ACID) [Concomitant]
  3. CIPRO (CIPROFLOXACIN) [Concomitant]
  4. FINASTERIDE (FINASTERIDE) [Concomitant]
  5. LISINOPRIL (LISINOPRIL) [Concomitant]
  6. POTASSIUM (POTASSIUM) [Concomitant]

REACTIONS (1)
  - Urinary tract infection [None]
